FAERS Safety Report 5147584-6 (Version None)
Quarter: 2006Q4

REPORT INFORMATION
  Report Type: 
  Country: None (occurrence: None)
  Receive Date: 20061106
  Receipt Date: 20061024
  Transmission Date: 20070319
  Serious: Yes (Other)
  Sender: FDA-Public Use
  Company Number: 2006109538

PATIENT
  Age: 46 Year
  Sex: Female

DRUGS (2)
  1. BENADRYL [Suspect]
     Indication: HYPERSENSITIVITY
     Dosage: 1 CAPLET TWICE ORAL
     Route: 048
     Dates: start: 20060801, end: 20060801
  2. HYDROXYZINE EMBONATE                 (HYDROXYZINE EMBONATE) [Concomitant]

REACTIONS (2)
  - DREAMY STATE [None]
  - HALLUCINATION [None]
